FAERS Safety Report 8422294-8 (Version None)
Quarter: 2012Q2

REPORT INFORMATION
  Report Type: 
  Country: None (occurrence: None)
  Receive Date: 20120323
  Receipt Date: 20110208
  Transmission Date: 20120825
  Serious: Yes (Other)
  Sender: FDA-Public Use
  Company Number: 163-21880-11021228

PATIENT
  Age: 72 Year
  Sex: Male

DRUGS (10)
  1. HYDROMORPHONE HCL [Concomitant]
  2. FISH OIL (FISH OIL) [Concomitant]
  3. PROAIR (FLUTICASONE PROPIONATE) [Concomitant]
  4. METFFORMIN HYDROCHLORIDE [Concomitant]
  5. DOCUSATE (DOCUSATE) [Concomitant]
  6. QVAR [Concomitant]
  7. REVLIMID [Suspect]
     Indication: MULTIPLE MYELOMA
     Dosage: 25 MG, DAILY X 21 DAYS THEN OFF FOR 7 DAYS, PO
     Route: 048
     Dates: start: 20101208, end: 20110102
  8. ALPRAZOLAM [Concomitant]
  9. GLIPIZIDE [Concomitant]
  10. HYDOCODONE/APAP (VICODIN) [Concomitant]

REACTIONS (1)
  - RASH PRURITIC [None]
